FAERS Safety Report 5633439-7 (Version None)
Quarter: 2008Q1

REPORT INFORMATION
  Report Type: 
  Country: None (occurrence: None)
  Receive Date: 20080221
  Receipt Date: 20080211
  Transmission Date: 20080703
  Serious: Yes (Hospitalization, Other)
  Sender: FDA-Public Use
  Company Number: US-PFIZER INC-2005036524

PATIENT
  Sex: Male
  Weight: 93 kg

DRUGS (3)
  1. BEXTRA [Suspect]
     Indication: OSTEOARTHRITIS
     Route: 048
     Dates: start: 20020101, end: 20041114
  2. HYTRIN [Concomitant]
     Route: 048
  3. PROSCAR [Concomitant]
     Route: 048

REACTIONS (5)
  - ANXIETY [None]
  - HYPERTENSION [None]
  - MUSCLE SPASMS [None]
  - STRESS [None]
  - TRANSIENT ISCHAEMIC ATTACK [None]
